FAERS Safety Report 9180929 (Version 4)
Quarter: 2014Q1

REPORT INFORMATION
  Report Type: Report from Study
  Country: NL (occurrence: NL)
  Receive Date: 20130322
  Receipt Date: 20140303
  Transmission Date: 20141002
  Serious: Yes (Death)
  Sender: FDA-Public Use
  Company Number: PHHO2013NL004047

PATIENT
  Sex: 0

DRUGS (5)
  1. AMN107 [Suspect]
     Indication: CHRONIC MYELOID LEUKAEMIA
     Dosage: 300 MG, BID
     Dates: start: 20110131
  2. METHOTREXATE [Concomitant]
     Indication: PSORIATIC ARTHROPATHY
     Dosage: 10 MG, QD
     Dates: start: 20120715, end: 20121009
  3. METHOTREXATE [Concomitant]
     Dosage: 20 MG, QD
     Dates: start: 20121015, end: 20121204
  4. FOLIC ACID [Concomitant]
     Dosage: 5 MG, QD
     Dates: start: 20120715, end: 20130104
  5. NEOTIGASON [Concomitant]
     Indication: PSORIASIS
     Dosage: 25 MG, QD
     Dates: start: 20121109, end: 20130315

REACTIONS (1)
  - Sudden death [Fatal]
